FAERS Safety Report 4854300-1 (Version None)
Quarter: 2005Q4

REPORT INFORMATION
  Report Type: 
  Country: None (occurrence: None)
  Receive Date: 20051213
  Receipt Date: 20051213
  Transmission Date: 20060501
  Serious: Yes (Hospitalization)
  Sender: FDA-Public Use
  Company Number: None

PATIENT
  Age: 27 Year
  Sex: Male
  Weight: 99.7913 kg

DRUGS (7)
  1. CLOZAPINE [Suspect]
     Indication: SCHIZOPHRENIA
     Dosage: 400MG  Q HS PO
     Route: 048
     Dates: start: 20050915, end: 20051003
  2. COLACE [Concomitant]
  3. SENNA [Concomitant]
  4. PROTONIX [Concomitant]
  5. COGENTIN [Concomitant]
  6. MULTI-VITAMIN [Concomitant]
  7. CLOZARIL [Concomitant]

REACTIONS (4)
  - CARDIAC DISORDER [None]
  - ECHOCARDIOGRAM ABNORMAL [None]
  - RESPIRATORY DISTRESS [None]
  - TRICUSPID VALVE INCOMPETENCE [None]
